FAERS Safety Report 10063427 (Version 1)
Quarter: 2014Q2

REPORT INFORMATION
  Report Type: Spontaneous
  Country: US (occurrence: US)
  Receive Date: 20140407
  Receipt Date: 20140407
  Transmission Date: 20141212
  Serious: No
  Sender: FDA-Public Use
  Company Number: US-PFIZER INC-2014097077

PATIENT
  Age: 63 Year
  Sex: Female
  Weight: 113.38 kg

DRUGS (3)
  1. LIPITOR [Suspect]
     Indication: BLOOD CHOLESTEROL INCREASED
     Dosage: UNK
  2. PROAIR [Concomitant]
     Indication: ASTHMA
     Dosage: UNK
  3. SPIRIVA [Concomitant]
     Indication: ASTHMA
     Dosage: UNK

REACTIONS (1)
  - Pain in extremity [Unknown]
